FAERS Safety Report 24839524 (Version 2)
Quarter: 2025Q3

REPORT INFORMATION
  Report Type: Spontaneous
  Country: US (occurrence: US)
  Receive Date: 20250114
  Receipt Date: 20250810
  Transmission Date: 20251021
  Serious: No
  Sender: ALEXION PHARMACEUTICALS
  Company Number: US-ASTRAZENECA-202501USA009345US

PATIENT
  Age: 85 Year
  Sex: Male

DRUGS (3)
  1. FARXIGA [Suspect]
     Active Substance: DAPAGLIFLOZIN PROPANEDIOL
     Route: 065
  2. ENTRESTO [Suspect]
     Active Substance: SACUBITRIL\VALSARTAN
     Dosage: UNK, BID
     Dates: start: 202207
  3. METOPROLOL [Suspect]
     Active Substance: METOPROLOL
     Route: 065

REACTIONS (13)
  - Blood potassium increased [Unknown]
  - Memory impairment [Unknown]
  - Blood sodium decreased [Unknown]
  - No adverse event [Unknown]
  - Rhinorrhoea [Unknown]
  - Swelling [Unknown]
  - Weight fluctuation [Unknown]
  - Confusional state [Unknown]
  - Blood creatinine increased [Unknown]
  - Gait disturbance [Unknown]
  - Memory impairment [Unknown]
  - Gait disturbance [Unknown]
  - Asthenia [Unknown]
